FAERS Safety Report 23977872 (Version 4)
Quarter: 2025Q3

REPORT INFORMATION
  Report Type: Spontaneous
  Country: US (occurrence: US)
  Receive Date: 20240614
  Receipt Date: 20250804
  Transmission Date: 20251021
  Serious: Yes (Hospitalization, Other)
  Sender: ALEXION PHARMACEUTICALS
  Company Number: 2024A135389

PATIENT
  Age: 67 Year
  Sex: Male
  Weight: 79.79 kg

DRUGS (18)
  1. OMEPRAZOLE [Suspect]
     Active Substance: OMEPRAZOLE
     Dates: start: 20230310, end: 20230524
  2. VUDALIMAB [Suspect]
     Active Substance: VUDALIMAB
     Indication: Prostate cancer metastatic
     Dosage: 10 MILLIGRAM/KILOGRAM, UNK
     Dates: start: 20230310, end: 20230310
  3. VUDALIMAB [Suspect]
     Active Substance: VUDALIMAB
     Indication: Adenocarcinoma
     Dosage: 20 MILLIGRAM/SQ. METER, UNK
     Dates: start: 20230328, end: 20230328
  4. VUDALIMAB [Suspect]
     Active Substance: VUDALIMAB
     Dosage: 20 MILLIGRAM/SQ. METER, UNK
     Dates: start: 20230410, end: 20230410
  5. VUDALIMAB [Suspect]
     Active Substance: VUDALIMAB
     Dosage: 20 MILLIGRAM/SQ. METER, UNK
     Dates: start: 20230428, end: 20230428
  6. VUDALIMAB [Suspect]
     Active Substance: VUDALIMAB
     Dosage: 20 MILLIGRAM/SQ. METER, UNK
     Dates: start: 20230515, end: 20230515
  7. VUDALIMAB [Suspect]
     Active Substance: VUDALIMAB
     Dosage: 20 MILLIGRAM/SQ. METER, UNK
     Dates: start: 20230615, end: 20230713
  8. CABAZITAXEL [Suspect]
     Active Substance: CABAZITAXEL
     Indication: Prostate cancer metastatic
     Dates: start: 20230310, end: 20230310
  9. CABAZITAXEL [Suspect]
     Active Substance: CABAZITAXEL
     Indication: Adenocarcinoma
     Dates: start: 20230403, end: 20230403
  10. CABAZITAXEL [Suspect]
     Active Substance: CABAZITAXEL
     Dates: start: 20230428, end: 20230428
  11. CABAZITAXEL [Suspect]
     Active Substance: CABAZITAXEL
     Dates: start: 20230616, end: 20230713
  12. LISINOPRIL [Concomitant]
     Active Substance: LISINOPRIL
     Route: 065
     Dates: start: 20230313, end: 20230523
  13. LIPITOR [Concomitant]
     Active Substance: ATORVASTATIN CALCIUM
     Route: 065
  14. HYDROCODONE [Concomitant]
     Active Substance: HYDROCODONE
     Route: 065
     Dates: start: 20230209, end: 20230524
  15. SODIUM ZIRCONIUM CYCLOSILICATE [Concomitant]
     Active Substance: SODIUM ZIRCONIUM CYCLOSILICATE
     Route: 065
     Dates: start: 20230410, end: 20230428
  16. METOCLOPRAMIDE [Concomitant]
     Active Substance: METOCLOPRAMIDE
     Route: 065
     Dates: start: 20230310, end: 20230515
  17. TUMS [Concomitant]
     Active Substance: CALCIUM CARBONATE
     Route: 065
  18. LUPRON [Concomitant]
     Active Substance: LEUPROLIDE ACETATE
     Route: 065
     Dates: start: 20100627, end: 20230624

REACTIONS (29)
  - Chronic kidney disease [Recovered/Resolved]
  - Kidney infection [Recovered/Resolved]
  - Pyrexia [Unknown]
  - Metastases to lymph nodes [Unknown]
  - Metastases to bone [Unknown]
  - Hyperkalaemia [Unknown]
  - Hyponatraemia [Unknown]
  - Blood creatinine increased [Unknown]
  - Hyperglycaemia [Unknown]
  - Transaminases increased [Unknown]
  - Blood thyroid stimulating hormone increased [Unknown]
  - Bladder dilatation [Unknown]
  - Hydronephrosis [Unknown]
  - Urinary tract obstruction [Unknown]
  - Dysuria [Unknown]
  - Sleep disorder [Unknown]
  - Haemoglobin decreased [Unknown]
  - Haematocrit decreased [Unknown]
  - Platelet count decreased [Unknown]
  - Blood potassium increased [Unknown]
  - Blood urea increased [Unknown]
  - Blood alkaline phosphatase increased [Unknown]
  - Prostatic specific antigen increased [Unknown]
  - Back pain [Unknown]
  - Nausea [Unknown]
  - Vomiting [Unknown]
  - Constipation [Unknown]
  - Pain [Unknown]
  - Aortic stenosis [Unknown]

NARRATIVE: CASE EVENT DATE: 20230313
